FAERS Safety Report 19881512 (Version 2)
Quarter: 2021Q4

REPORT INFORMATION
  Report Type: Other
  Country: US (occurrence: None)
  Receive Date: 20210925
  Receipt Date: 20211122
  Transmission Date: 20220303
  Serious: Yes (Death)
  Sender: FDA-Public Use
  Company Number: US-ROCHE-2920561

PATIENT
  Age: 68 Year
  Sex: Female

DRUGS (11)
  1. ESBRIET [Suspect]
     Active Substance: PIRFENIDONE
     Indication: Idiopathic pulmonary fibrosis
     Dosage: 3 CAPSULE THREE TIMES A DAY
     Route: 048
  2. ATORVASTATIN CALCIUM [Concomitant]
     Active Substance: ATORVASTATIN CALCIUM
  3. CETIRIZINE HYDROCHLORIDE [Concomitant]
     Active Substance: CETIRIZINE HYDROCHLORIDE
  4. DOXYCYCLINE [Concomitant]
     Active Substance: DOXYCYCLINE
  5. FLUTICASONE PROPIONATE [Concomitant]
     Active Substance: FLUTICASONE PROPIONATE
  6. HYDROCHLOROTHIAZIDE [Concomitant]
     Active Substance: HYDROCHLOROTHIAZIDE
  7. LISINOPRIL [Concomitant]
     Active Substance: LISINOPRIL
  8. METFORMIN HYDROCHLORIDE [Concomitant]
     Active Substance: METFORMIN HYDROCHLORIDE
  9. NOVOLOG [Concomitant]
     Active Substance: INSULIN ASPART
  10. PREDNISONE [Concomitant]
     Active Substance: PREDNISONE
  11. TRESIBA [Concomitant]
     Active Substance: INSULIN DEGLUDEC

REACTIONS (1)
  - Death [Fatal]

NARRATIVE: CASE EVENT DATE: 20210918
